FAERS Safety Report 4593755-7 (Version None)
Quarter: 2005Q1

REPORT INFORMATION
  Report Type: 
  Country: None (occurrence: None)
  Receive Date: 20050224
  Receipt Date: 20041207
  Transmission Date: 20050727
  Serious: Yes (Hospitalization)
  Sender: FDA-Public Use
  Company Number: US-BRISTOL-MYERS SQUIBB COMPANY-12788501

PATIENT
  Age: 85 Year
  Sex: Male
  Weight: 102 kg

DRUGS (4)
  1. EXCEDRIN (MIGRAINE) [Suspect]
     Indication: HEADACHE
     Route: 048
  2. TRAZODONE HCL [Concomitant]
     Dosage: DURATION: ^A FEW YEARS^
  3. VERAPAMIL HCL [Concomitant]
     Dosage: DURATION: ^A FEW YEARS^
  4. ZOLOFT [Concomitant]
     Dosage: DURATION: ^A FEW YEARS^

REACTIONS (1)
  - HAEMATOCHEZIA [None]
